FAERS Safety Report 5900124-3 (Version None)
Quarter: 2008Q3

REPORT INFORMATION
  Report Type: 
  Country: None (occurrence: None)
  Receive Date: 20080926
  Receipt Date: 20080916
  Transmission Date: 20090109
  Serious: Yes (Other)
  Sender: FDA-Public Use
  Company Number: US-GENENTECH-268235

PATIENT
  Sex: Male
  Weight: 43.6 kg

DRUGS (2)
  1. HUMATROPE [Suspect]
     Indication: UNEVALUABLE EVENT
     Dosage: 3.7 MG, QD
     Route: 058
     Dates: start: 20061201
  2. ALBUTEROL [Concomitant]
     Indication: DRUG USE FOR UNKNOWN INDICATION
     Dosage: UNK PUFF, PRN
     Route: 048

REACTIONS (1)
  - SCOLIOSIS [None]
